FAERS Safety Report 19278090 (Version 1)
Quarter: 2021Q2

REPORT INFORMATION
  Report Type: Spontaneous
  Country: US (occurrence: US)
  Receive Date: 20210519
  Receipt Date: 20210519
  Transmission Date: 20210717
  Serious: Yes (Life-Threatening, Hospitalization, Disabling, Other)
  Sender: FDA-Public Use
  Company Number: None

PATIENT
  Age: 31 Year
  Sex: Male
  Weight: 119 kg

DRUGS (6)
  1. CLOZAPINE. [Suspect]
     Active Substance: CLOZAPINE
     Indication: SCHIZOAFFECTIVE DISORDER BIPOLAR TYPE
     Route: 048
     Dates: start: 20210122, end: 20210205
  2. CEFUROXIME. [Concomitant]
     Active Substance: CEFUROXIME
     Dates: start: 20210203, end: 20210205
  3. BACITRACIN TOPICAL OINTMENT [Concomitant]
     Dates: start: 20210120, end: 20210205
  4. NALTREXONE [Concomitant]
     Active Substance: NALTREXONE
     Dates: start: 20210201, end: 20210205
  5. CYANCOBALAMIN [Concomitant]
     Active Substance: CYANOCOBALAMIN
     Dates: start: 20210124, end: 20210215
  6. ARIPIPRAZOLE ARISTADA [Concomitant]
     Dates: start: 20201220

REACTIONS (7)
  - Pain [None]
  - Sinus tachycardia [None]
  - Vomiting [None]
  - Cardiac failure [None]
  - Nausea [None]
  - Myocarditis [None]
  - Pyrexia [None]

NARRATIVE: CASE EVENT DATE: 20210122
